FAERS Safety Report 8150362-7 (Version None)
Quarter: 2012Q1

REPORT INFORMATION
  Report Type: 
  Country: None (occurrence: None)
  Receive Date: 20120220
  Receipt Date: 20120215
  Transmission Date: 20120608
  Serious: Yes (Other)
  Sender: FDA-Public Use
  Company Number: US-PFIZER INC-2012040900

PATIENT
  Age: 70 Year
  Sex: Female

DRUGS (1)
  1. AMLODIPINE BESYLATE [Suspect]
     Indication: HYPERTENSION
     Dosage: 2.5 MG, 1X/DAY
     Route: 048
     Dates: start: 20110101, end: 20120204

REACTIONS (4)
  - CONVULSION [None]
  - PAROSMIA [None]
  - OEDEMA PERIPHERAL [None]
  - BLOOD PRESSURE INADEQUATELY CONTROLLED [None]
